FAERS Safety Report 8702140 (Version 2)
Quarter: 2012Q4

REPORT INFORMATION
  Report Type: 
  Country: FR (occurrence: FR)
  Receive Date: 20120803
  Receipt Date: 20121228
  Transmission Date: 20130627
  Serious: Yes (Life-Threatening, Hospitalization, Other)
  Sender: FDA-Public Use
  Company Number: FR-BRISTOL-MYERS SQUIBB COMPANY-16802142

PATIENT
  Age: 67 Year
  Sex: Female

DRUGS (11)
  1. ABILIFY [Suspect]
     Indication: BIPOLAR DISORDER
     Route: 048
     Dates: start: 20120704
  2. TRUVADA [Suspect]
  3. ISENTRESS [Concomitant]
  4. IMOVANE [Concomitant]
  5. THERALENE [Concomitant]
  6. SEROPLEX [Concomitant]
  7. XANAX [Concomitant]
  8. PARIET [Concomitant]
  9. MOTILIUM [Concomitant]
  10. SMECTA [Concomitant]
  11. BEPANTHENE [Concomitant]

REACTIONS (6)
  - Diarrhoea [Not Recovered/Not Resolved]
  - Hypokalaemia [Not Recovered/Not Resolved]
  - Renal tubular disorder [Not Recovered/Not Resolved]
  - Myalgia [Recovered/Resolved]
  - Blood creatine phosphokinase increased [Recovered/Resolved]
  - Dyskinesia [Not Recovered/Not Resolved]
